FAERS Safety Report 4673589-5 (Version None)
Quarter: 2005Q2

REPORT INFORMATION
  Report Type: 
  Country: None (occurrence: None)
  Receive Date: 20050523
  Receipt Date: 20050510
  Transmission Date: 20051028
  Serious: Yes (Hospitalization)
  Sender: FDA-Public Use
  Company Number: US015235

PATIENT
  Age: 65 Year
  Sex: Female
  Weight: 73.4827 kg

DRUGS (20)
  1. GABITRIL [Suspect]
     Indication: FIBROMYALGIA
     Dosage: 2 MG QHS ORAL
     Route: 048
     Dates: start: 20050126, end: 20050201
  2. GABITRIL [Suspect]
     Indication: SLEEP DISORDER
     Dosage: 2 MG QHS ORAL
     Route: 048
     Dates: start: 20050126, end: 20050201
  3. GABITRIL [Suspect]
     Indication: FIBROMYALGIA
     Dosage: 4 MG QHS ORAL
     Route: 048
     Dates: start: 20050202, end: 20050208
  4. GABITRIL [Suspect]
     Indication: SLEEP DISORDER
     Dosage: 4 MG QHS ORAL
     Route: 048
     Dates: start: 20050202, end: 20050208
  5. GABITRIL [Suspect]
     Indication: FIBROMYALGIA
     Dosage: 6 MG QD ORAL
     Route: 048
     Dates: start: 20050209, end: 20050222
  6. GABITRIL [Suspect]
     Indication: SLEEP DISORDER
     Dosage: 6 MG QD ORAL
     Route: 048
     Dates: start: 20050209, end: 20050222
  7. GABITRIL [Suspect]
     Indication: FIBROMYALGIA
     Dosage: 8 MG QHS ORAL
     Route: 048
     Dates: start: 20050223, end: 20050301
  8. GABITRIL [Suspect]
     Indication: SLEEP DISORDER
     Dosage: 8 MG QHS ORAL
     Route: 048
     Dates: start: 20050223, end: 20050301
  9. GABITRIL [Suspect]
     Indication: FIBROMYALGIA
     Dosage: 10 MG QHS ORAL
     Route: 048
     Dates: start: 20050302, end: 20050308
  10. GABITRIL [Suspect]
     Indication: SLEEP DISORDER
     Dosage: 10 MG QHS ORAL
     Route: 048
     Dates: start: 20050302, end: 20050308
  11. GABITRIL [Suspect]
     Indication: FIBROMYALGIA
     Dosage: 12 MG QHS ORAL
     Route: 048
     Dates: start: 20050309, end: 20050408
  12. GABITRIL [Suspect]
     Indication: SLEEP DISORDER
     Dosage: 12 MG QHS ORAL
     Route: 048
     Dates: start: 20050309, end: 20050408
  13. MIDRIN [Concomitant]
  14. MIRAPEX [Concomitant]
  15. MIACALCIN [Concomitant]
  16. LEXAPRO [Concomitant]
  17. FLEXERIL [Concomitant]
  18. MOBIC [Concomitant]
  19. PREVACID [Concomitant]
  20. VITAMIN SUPPLEMENTS [Concomitant]

REACTIONS (8)
  - AGITATION [None]
  - DELIRIUM [None]
  - ELECTROENCEPHALOGRAM ABNORMAL [None]
  - FAECAL INCONTINENCE [None]
  - GRAND MAL CONVULSION [None]
  - INCOHERENT [None]
  - LOSS OF CONSCIOUSNESS [None]
  - URINARY INCONTINENCE [None]
